FAERS Safety Report 16719706 (Version 1)
Quarter: 2019Q3

REPORT INFORMATION
  Report Type: Spontaneous
  Country: DE (occurrence: DE)
  Receive Date: 20190820
  Receipt Date: 20190820
  Transmission Date: 20191005
  Serious: Yes (Hospitalization, Other)
  Sender: FDA-Public Use
  Company Number: DE-PFIZER INC-2019352195

PATIENT
  Age: 60 Year
  Sex: Female
  Weight: 115 kg

DRUGS (1)
  1. DOCETAXEL. [Suspect]
     Active Substance: DOCETAXEL
     Indication: BREAST CANCER FEMALE
     Dosage: UNK
     Route: 041
     Dates: start: 20101130, end: 20101130

REACTIONS (1)
  - Second primary malignancy [Unknown]

NARRATIVE: CASE EVENT DATE: 20110704
